FAERS Safety Report 9683921 (Version 1)
Quarter: 2013Q4

REPORT INFORMATION
  Report Type: Spontaneous
  Country: US (occurrence: US)
  Receive Date: 20131112
  Receipt Date: 20131112
  Transmission Date: 20140711
  Serious: No
  Sender: FDA-Public Use
  Company Number: US-MALLINCKRODT-T201304551

PATIENT
  Age: 71 Year
  Sex: Female
  Weight: 45.35 kg

DRUGS (5)
  1. FENTANYL TRANSDERMAL SYSTEM [Suspect]
     Indication: PAIN MANAGEMENT
     Dosage: 25 UG/HR, Q 72 HRS
     Route: 062
     Dates: start: 2013
  2. DILAUDID [Concomitant]
     Indication: PAIN
     Dosage: 4 MG, PRN
     Route: 048
  3. GABAPENTIN [Concomitant]
     Indication: NEURALGIA
     Dosage: 400 MG, TID
     Route: 048
  4. ZOLOFT [Concomitant]
     Indication: NEURALGIA
     Dosage: 100 MG, QD
     Route: 048
  5. AMBIEN [Concomitant]
     Indication: SLEEP DISORDER
     Dosage: 5 MG, QHS
     Route: 048

REACTIONS (3)
  - Drug ineffective [Not Recovered/Not Resolved]
  - Extra dose administered [Unknown]
  - Product adhesion issue [Unknown]
